FAERS Safety Report 7078797-4 (Version None)
Quarter: 2010Q4

REPORT INFORMATION
  Report Type: 
  Country: None (occurrence: None)
  Receive Date: 20101102
  Receipt Date: 20101027
  Transmission Date: 20110411
  Serious: Yes (Life-Threatening, Hospitalization, Other)
  Sender: FDA-Public Use
  Company Number: GB-PFIZER INC-2010137274

PATIENT
  Age: 65 Year
  Sex: Female

DRUGS (7)
  1. CHAMPIX [Suspect]
     Indication: SMOKING CESSATION THERAPY
     Dosage: 500 UG, 1X/DAY
     Route: 048
     Dates: start: 20101006
  2. CHAMPIX [Suspect]
     Dosage: 1 MG, 2X/DAY
     Route: 048
     Dates: end: 20101017
  3. CHAMPIX [Suspect]
     Dosage: 500 UG, 2X/DAY
     Route: 048
  4. FLUTICASONE PROPIONATE [Concomitant]
     Dosage: 1 DF, 2X/DAY
     Route: 055
  5. OMEPRAZOLE [Concomitant]
     Dosage: 20 MG, WEEKLY
  6. RAMIPRIL [Concomitant]
     Dosage: 10 MG, 1X/DAY
  7. SALBUTAMOL [Concomitant]
     Dosage: 2 DF, AS NEEDED

REACTIONS (6)
  - ABNORMAL DREAMS [None]
  - ACUTE MYOCARDIAL INFARCTION [None]
  - CHEST PAIN [None]
  - DEPRESSED MOOD [None]
  - PARAESTHESIA [None]
  - SLEEP DISORDER [None]
